FAERS Safety Report 7804275-8 (Version None)
Quarter: 2011Q4

REPORT INFORMATION
  Report Type: 
  Country: None (occurrence: None)
  Receive Date: 20111010
  Receipt Date: 20111005
  Transmission Date: 20120403
  Serious: Yes (Death, Hospitalization)
  Sender: FDA-Public Use
  Company Number: PHEH2011US05303

PATIENT
  Sex: Male

DRUGS (1)
  1. EXJADE [Suspect]
     Indication: IRON OVERLOAD
     Dosage: 500 MG
     Dates: start: 20090101, end: 20091001

REACTIONS (6)
  - MANTLE CELL LYMPHOMA [None]
  - NEOPLASM PROGRESSION [None]
  - SINUSITIS FUNGAL [None]
  - NEOPLASM MALIGNANT [None]
  - PYREXIA [None]
  - TERMINAL STATE [None]
